FAERS Safety Report 10168684 (Version 2)
Quarter: 2014Q3

REPORT INFORMATION
  Report Type: Spontaneous
  Country: CA (occurrence: None)
  Receive Date: 20140509
  Receipt Date: 20140711
  Transmission Date: 20150326
  Serious: Yes (Other)
  Sender: FDA-Public Use
  Company Number: CA-015549

PATIENT
  Age: 33 Year
  Sex: Female
  Weight: 55.79 kg

DRUGS (3)
  1. AVELOX [Concomitant]
     Active Substance: MOXIFLOXACIN HYDROCHLORIDE
  2. ASPIRIN. [Concomitant]
     Active Substance: ASPIRIN
  3. ENDOMETRIN [Suspect]
     Active Substance: PROGESTERONE
     Indication: PRODUCT USED FOR UNKNOWN INDICATION
     Dosage: 1 WEEK 6 DAYS UNTIL NOT CONTINUING, 100 MG BID, VAGINAL
     Route: 067

REACTIONS (2)
  - Abortion spontaneous [None]
  - Exposure during pregnancy [None]
